FAERS Safety Report 11458157 (Version 1)
Quarter: 2015Q3

REPORT INFORMATION
  Report Type: Spontaneous
  Country: US (occurrence: None)
  Receive Date: 20150903
  Receipt Date: 20150903
  Transmission Date: 20151125
  Serious: No
  Sender: FDA-Public Use
  Company Number: None

PATIENT
  Age: 20 Year
  Sex: Male

DRUGS (15)
  1. SIMVASTATIN. [Concomitant]
     Active Substance: SIMVASTATIN
  2. SPIRIVA [Concomitant]
     Active Substance: TIOTROPIUM BROMIDE MONOHYDRATE
  3. ZYRTEC [Concomitant]
     Active Substance: CETIRIZINE HYDROCHLORIDE
  4. ADVAIR HFA [Concomitant]
     Active Substance: FLUTICASONE PROPIONATE\SALMETEROL XINAFOATE
  5. PREDNISONE. [Concomitant]
     Active Substance: PREDNISONE
  6. ASPIRIN. [Concomitant]
     Active Substance: ASPIRIN
  7. FARXIGA [Concomitant]
     Active Substance: DAPAGLIFLOZIN PROPANEDIOL
  8. ZYTIGA [Suspect]
     Active Substance: ABIRATERONE ACETATE
     Route: 048
     Dates: start: 20150805
  9. LUPRON DEPOT [Concomitant]
     Active Substance: LEUPROLIDE ACETATE
  10. XGEVA [Concomitant]
     Active Substance: DENOSUMAB
  11. RAMIPRIL. [Concomitant]
     Active Substance: RAMIPRIL
  12. METOPROLOL [Concomitant]
     Active Substance: METOPROLOL
  13. LOVAZA [Concomitant]
     Active Substance: OMEGA-3-ACID ETHYL ESTERS
  14. PROAIR HFA [Concomitant]
     Active Substance: ALBUTEROL SULFATE
  15. JANUMET [Concomitant]
     Active Substance: METFORMIN HYDROCHLORIDE\SITAGLIPTIN PHOSPHATE

REACTIONS (2)
  - Constipation [None]
  - Infrequent bowel movements [None]

NARRATIVE: CASE EVENT DATE: 20150805
